FAERS Safety Report 23499241 (Version 2)
Quarter: 2024Q1

REPORT INFORMATION
  Report Type: Spontaneous
  Country: DE (occurrence: DE)
  Receive Date: 20240208
  Receipt Date: 20240220
  Transmission Date: 20240409
  Serious: Yes (Hospitalization, Other)
  Sender: FDA-Public Use
  Company Number: None

PATIENT
  Age: 66 Year
  Sex: Female
  Weight: 72 kg

DRUGS (1)
  1. RINVOQ [Suspect]
     Active Substance: UPADACITINIB
     Indication: Dermatitis atopic
     Dosage: 15 MG/DAY
     Route: 048
     Dates: start: 20221011, end: 20240112

REACTIONS (9)
  - Blood pressure abnormal [Unknown]
  - Pneumonia [Recovered/Resolved]
  - Blood glucose abnormal [Unknown]
  - Circulatory collapse [Unknown]
  - Cardiovascular disorder [Recovered/Resolved]
  - Hypertensive crisis [Unknown]
  - Feeling abnormal [Unknown]
  - Somnolence [Recovering/Resolving]
  - Fatigue [Recovering/Resolving]

NARRATIVE: CASE EVENT DATE: 20240105
